FAERS Safety Report 9189276 (Version 1)
Quarter: 2013Q1

REPORT INFORMATION
  Report Type: Spontaneous
  Country: US (occurrence: None)
  Receive Date: 20130321
  Receipt Date: 20130321
  Transmission Date: 20140127
  Serious: No
  Sender: FDA-Public Use
  Company Number: None

PATIENT
  Age: 11 Year
  Sex: Female
  Weight: 63.8 kg

DRUGS (8)
  1. DAPSONE [Suspect]
     Indication: PNEUMOCYSTIS JIROVECII PNEUMONIA
     Dates: start: 20120925, end: 20121002
  2. DAPSONE [Suspect]
     Indication: PROPHYLAXIS
     Dates: start: 20120925, end: 20121002
  3. DEXAMETHASONE [Concomitant]
  4. MERCAPTOPURINE [Concomitant]
  5. METHOTREXATE SODIUM [Concomitant]
  6. POLYETHYLENE GLYCOL [Concomitant]
  7. LIDOCAINE-PRILOCAINE [Concomitant]
  8. ONDANSETRON [Concomitant]

REACTIONS (2)
  - Methaemoglobinaemia [None]
  - Pneumonia [None]
